FAERS Safety Report 23111573 (Version 2)
Quarter: 2023Q4

REPORT INFORMATION
  Report Type: Spontaneous
  Country: JP (occurrence: JP)
  Receive Date: 20231026
  Receipt Date: 20231227
  Transmission Date: 20240109
  Serious: Yes (Death)
  Sender: FDA-Public Use
  Company Number: JP-DAIICHI SANKYO, INC.-DSJ-2023-143741

PATIENT
  Sex: Female

DRUGS (1)
  1. VANFLYTA [Suspect]
     Active Substance: QUIZARTINIB DIHYDROCHLORIDE
     Indication: Acute myeloid leukaemia
     Dosage: 26.5 MG
     Route: 048

REACTIONS (1)
  - Hypopnoea [Fatal]
